FAERS Safety Report 25941526 (Version 1)
Quarter: 2025Q4

REPORT INFORMATION
  Report Type: Spontaneous
  Country: US (occurrence: None)
  Receive Date: 20251020
  Receipt Date: 20251020
  Transmission Date: 20260117
  Serious: Yes (Hospitalization)
  Sender: FDA-CTU
  Company Number: None

PATIENT
  Sex: Female

DRUGS (3)
  1. CAPECITABINE [Suspect]
     Active Substance: CAPECITABINE
     Indication: Neuroendocrine tumour
     Dosage: OTHER FREQUENCY : IN THE MORNING ON DAYS 1-14 OF A 28 DAY CYCLE;?
     Route: 048
     Dates: start: 20250405
  2. CAPECITABINE [Suspect]
     Active Substance: CAPECITABINE
     Dosage: OTHER FREQUENCY : IN THE EVENING ON DAYS 1-14 OF A 28 DAY CYCLE;?
     Route: 048
  3. TEMOZOLOMIDE [Suspect]
     Active Substance: TEMOZOLOMIDE
     Indication: Neuroendocrine tumour
     Dosage: OTHER FREQUENCY : AT BEDTIME  ON DAYS 10-14 OF A 28 DAY CYCLE;?
     Route: 048

REACTIONS (1)
  - White blood cell count decreased [None]
